FAERS Safety Report 5622513-7 (Version None)
Quarter: 2008Q1

REPORT INFORMATION
  Report Type: 
  Country: None (occurrence: None)
  Receive Date: 20080114
  Receipt Date: 20070829
  Transmission Date: 20080703
  Serious: Yes (Hospitalization)
  Sender: FDA-Public Use
  Company Number: A03200705380

PATIENT
  Sex: Female

DRUGS (10)
  1. PLAVIX [Suspect]
     Dosage: ORAL
     Route: 048
  2. COREG [Suspect]
     Indication: CARDIAC FAILURE CONGESTIVE
     Dosage: 25 MG QD - ORAL
     Route: 048
  3. OMEGA-3 MARINE TRIGLYCERIDES [Concomitant]
  4. DIAZEPAM [Concomitant]
  5. LANSOPRAZOLE [Concomitant]
  6. ACETYLSALICYLIC ACID SRT [Concomitant]
  7. LOSARTAN POTASSIUM+HYDROCHLOROTHIAZIDE [Concomitant]
  8. VITAMIN CAP [Concomitant]
  9. GLYCERYL TRINITRATE [Concomitant]
  10. CALCIUM [Concomitant]

REACTIONS (3)
  - HYPOAESTHESIA [None]
  - LOCAL SWELLING [None]
  - SKIN ULCER [None]
